FAERS Safety Report 19832932 (Version 1)
Quarter: 2021Q3

REPORT INFORMATION
  Report Type: Spontaneous
  Country: ES (occurrence: ES)
  Receive Date: 20210915
  Receipt Date: 20210915
  Transmission Date: 20211014
  Serious: Yes (Hospitalization)
  Sender: FDA-Public Use
  Company Number: ES-STRIDES ARCOLAB LIMITED-2021SP027779

PATIENT
  Age: 4 Year
  Sex: Female

DRUGS (2)
  1. CANAKINUMAB. [Suspect]
     Active Substance: CANAKINUMAB
     Indication: STILL^S DISEASE
     Dosage: UNK
     Route: 065
  2. PREDNISOLONE. [Suspect]
     Active Substance: PREDNISOLONE
     Indication: STILL^S DISEASE
     Dosage: 1 MILLIGRAM/KILOGRAM, PER DAY
     Route: 065

REACTIONS (5)
  - Device related thrombosis [Unknown]
  - COVID-19 [Unknown]
  - Superinfection bacterial [Unknown]
  - Pneumonia [Unknown]
  - Deep vein thrombosis [Unknown]
